FAERS Safety Report 5093497-8 (Version None)
Quarter: 2006Q3

REPORT INFORMATION
  Report Type: 
  Country: None (occurrence: None)
  Receive Date: 20060829
  Receipt Date: 20060819
  Transmission Date: 20061208
  Serious: Yes (Other)
  Sender: FDA-Public Use
  Company Number: 2006088737

PATIENT
  Age: 64 Year
  Sex: Female
  Weight: 82.5547 kg

DRUGS (3)
  1. ZOLOFT [Suspect]
     Indication: BIPOLAR DISORDER
     Dosage: 50 MG (50 MG, 1 IN 1 D),
     Dates: start: 19960101, end: 20060101
  2. DEPAKOTE [Suspect]
     Indication: DRUG USE FOR UNKNOWN INDICATION
     Dosage: 1500 MG (2 IN 2 D),
  3. TOPAMAX [Suspect]
     Indication: DRUG USE FOR UNKNOWN INDICATION
     Dates: start: 20060101, end: 20060101

REACTIONS (8)
  - EXOPHTHALMOS [None]
  - GENERALISED OEDEMA [None]
  - HYPOMANIA [None]
  - INFLAMMATION [None]
  - LOCAL SWELLING [None]
  - MUSCLE SPASMS [None]
  - PARAESTHESIA [None]
  - SWELLING FACE [None]
